FAERS Safety Report 12582349 (Version 1)
Quarter: 2016Q3

REPORT INFORMATION
  Report Type: Spontaneous
  Country: US (occurrence: None)
  Receive Date: 20160721
  Receipt Date: 20160721
  Transmission Date: 20161109
  Serious: Yes (Life-Threatening, Hospitalization, Disabling)
  Sender: FDA-Public Use
  Company Number: None

PATIENT
  Age: 59 Year
  Sex: Female
  Weight: 99.79 kg

DRUGS (6)
  1. LYSINE [Concomitant]
     Active Substance: LYSINE
  2. ALEVE [Suspect]
     Active Substance: NAPROXEN SODIUM
     Indication: ARTHRITIS
     Route: 048
     Dates: start: 20150626, end: 20160115
  3. COUMADIN [Concomitant]
     Active Substance: WARFARIN SODIUM
  4. BYSTOLIC [Concomitant]
     Active Substance: NEBIVOLOL HYDROCHLORIDE
  5. VITAMIN B COMPLEX [Concomitant]
     Active Substance: CYANOCOBALAMIN\DEXPANTHENOL\NIACINAMIDE\PYRIDOXINE HYDROCHLORIDE\RIBOFLAVIN 5^-PHOSPHATE SODIUM\THIAMINE HYDROCHLORIDE\VITAMIN B COMPLEX
  6. CELEBREX [Suspect]
     Active Substance: CELECOXIB
     Indication: ARTHRALGIA
     Route: 048
     Dates: start: 20150515, end: 20150530

REACTIONS (9)
  - Nasopharyngitis [None]
  - Chest discomfort [None]
  - Abdominal pain upper [None]
  - Hypertension [None]
  - Deep vein thrombosis [None]
  - Cough [None]
  - Chest pain [None]
  - Pulmonary embolism [None]
  - Drug intolerance [None]

NARRATIVE: CASE EVENT DATE: 20160116
